FAERS Safety Report 6292483-X (Version None)
Quarter: 2009Q3

REPORT INFORMATION
  Report Type: 
  Country: None (occurrence: None)
  Receive Date: 20090731
  Receipt Date: 20090723
  Transmission Date: 20100115
  Serious: Yes (Other)
  Sender: FDA-Public Use
  Company Number: AU-ASTRAZENECA-2009SE05536

PATIENT
  Age: 50 Year
  Sex: Female

DRUGS (3)
  1. ATACAND [Suspect]
     Indication: ESSENTIAL HYPERTENSION
     Route: 048
     Dates: start: 20080326, end: 20080326
  2. IBUPROFEN [Suspect]
     Indication: PAIN
     Dosage: 20 DOSES UNSPECIFIED
     Route: 048
     Dates: start: 20080326, end: 20080327
  3. ACETAMINOPHEN W/ CODEINE [Suspect]
     Indication: PAIN
     Dosage: 16 DOSES
     Route: 048
     Dates: start: 20080326, end: 20080327

REACTIONS (7)
  - ANAPHYLACTIC REACTION [None]
  - ANGIOEDEMA [None]
  - DYSPNOEA [None]
  - EYELID OEDEMA [None]
  - OVERDOSE [None]
  - RASH [None]
  - STRIDOR [None]
